FAERS Safety Report 11491636 (Version 1)
Quarter: 2015Q3

REPORT INFORMATION
  Report Type: Spontaneous
  Country: GB (occurrence: GB)
  Receive Date: 20150910
  Receipt Date: 20150910
  Transmission Date: 20151125
  Serious: Yes (Hospitalization)
  Sender: FDA-Public Use
  Company Number: GB-GE HEALTHCARE MEDICAL DIAGNOSTICS-N123-PR-1509S-0002

PATIENT
  Age: 78 Year
  Sex: Female

DRUGS (15)
  1. CLOPIDOGREL [Concomitant]
     Active Substance: CLOPIDOGREL BISULFATE
  2. ENOXAPARIN [Concomitant]
     Active Substance: ENOXAPARIN
  3. LANTUS [Concomitant]
     Active Substance: INSULIN GLARGINE
  4. FONDAPARINUX [Concomitant]
     Active Substance: FONDAPARINUX
  5. LANSOPRAZOLE. [Concomitant]
     Active Substance: LANSOPRAZOLE
  6. NOVORAPID [Concomitant]
     Active Substance: INSULIN ASPART
  7. FUROSEMIDE. [Concomitant]
     Active Substance: FUROSEMIDE
  8. ATORVASTATIN [Concomitant]
     Active Substance: ATORVASTATIN
  9. CALCICHEW D3 [Concomitant]
     Active Substance: CALCIUM\CHOLECALCIFEROL
  10. NEBIVOLOL. [Concomitant]
     Active Substance: NEBIVOLOL
  11. TICAGRELOR [Concomitant]
     Active Substance: TICAGRELOR
  12. [I-123] SODIUM IODIDE INJECTION [Suspect]
     Active Substance: SODIUM IODIDE I-123
     Indication: PRODUCT USED FOR UNKNOWN INDICATION
     Dosage: DOSE NOT REPORTED
     Route: 042
     Dates: start: 20150818, end: 20150818
  13. ASPIRIN. [Concomitant]
     Active Substance: ASPIRIN
  14. [I-123] SODIUM IODIDE INJECTION [Suspect]
     Active Substance: SODIUM IODIDE I-123
     Indication: DIAGNOSTIC PROCEDURE
  15. NICORANDIL [Concomitant]
     Active Substance: NICORANDIL

REACTIONS (2)
  - Confusional state [Not Recovered/Not Resolved]
  - Acute kidney injury [Not Recovered/Not Resolved]

NARRATIVE: CASE EVENT DATE: 20150818
